APPROVED DRUG PRODUCT: TIMOLOL MALEATE
Active Ingredient: TIMOLOL MALEATE
Strength: EQ 0.25% BASE
Dosage Form/Route: SOLUTION/DROPS;OPHTHALMIC
Application: A074261 | Product #001 | TE Code: AT1
Applicant: SANDOZ INC
Approved: Apr 28, 1995 | RLD: No | RS: Yes | Type: RX